FAERS Safety Report 21724054 (Version 2)
Quarter: 2023Q2

REPORT INFORMATION
  Report Type: Spontaneous
  Country: US (occurrence: US)
  Receive Date: 20221213
  Receipt Date: 20230414
  Transmission Date: 20230721
  Serious: No
  Sender: FDA-Public Use
  Company Number: US-AMGEN-USASP2022212517

PATIENT
  Age: 29 Year
  Sex: Female

DRUGS (10)
  1. OTEZLA [Suspect]
     Active Substance: APREMILAST
     Indication: Psoriatic arthropathy
     Dosage: 30 MILLIGRAM, QD
     Route: 048
  2. OTEZLA [Suspect]
     Active Substance: APREMILAST
     Indication: Migraine with aura
     Dosage: 30 MILLIGRAM, BID
     Route: 048
  3. AMITRIPTYLINE HCL CF [Concomitant]
     Route: 065
  4. VYVANSE [Concomitant]
     Active Substance: LISDEXAMFETAMINE DIMESYLATE
     Route: 065
  5. PROPRANOLOL HYDROCHLORIDE TSURUHARA [Concomitant]
     Dosage: 40 MILLIGRAM
     Route: 065
  6. QULIPTA [Concomitant]
     Active Substance: ATOGEPANT
     Route: 065
  7. CLONAZEPAM [Concomitant]
     Active Substance: CLONAZEPAM
     Route: 065
  8. SINGULAIR [Concomitant]
     Active Substance: MONTELUKAST SODIUM
     Route: 065
  9. METHOTREXATE [Concomitant]
     Active Substance: METHOTREXATE
     Dosage: 2.5 MILLIGRAM
  10. XYWAV [Concomitant]
     Active Substance: CALCIUM OXYBATE\MAGNESIUM OXYBATE\POTASSIUM OXYBATE\SODIUM OXYBATE
     Route: 065

REACTIONS (5)
  - Off label use [Unknown]
  - Product administration interrupted [Unknown]
  - Hypersomnia [Unknown]
  - Pain in extremity [Unknown]
  - Drug ineffective [Unknown]
